FAERS Safety Report 19195113 (Version 2)
Quarter: 2021Q2

REPORT INFORMATION
  Report Type: Spontaneous
  Country: US (occurrence: US)
  Receive Date: 20210429
  Receipt Date: 20210505
  Transmission Date: 20210717
  Serious: Yes (Hospitalization)
  Sender: FDA-Public Use
  Company Number: NVSC2021US092083

PATIENT
  Sex: Female
  Weight: 1.55 kg

DRUGS (11)
  1. METOPROLOL. [Suspect]
     Active Substance: METOPROLOL
     Indication: FOETAL EXPOSURE DURING PREGNANCY
     Dosage: MATERNAL DOSE: 50 MG DAILY
     Route: 064
  2. DIGOXIN. [Suspect]
     Active Substance: DIGOXIN
     Indication: FOETAL EXPOSURE DURING PREGNANCY
     Dosage: MATERNAL DOSE: LOAD 500 UG (3 DOSES)
     Route: 064
  3. AMIODARONE [Suspect]
     Active Substance: AMIODARONE
     Dosage: MATERNAL DOSE: 100 MG QD
     Route: 064
  4. DIGOXIN. [Suspect]
     Active Substance: DIGOXIN
     Dosage: MATERNAL DOSE: 88 UG/KG (64 UG) ONCE/SINGLE
     Route: 064
  5. FLECAINIDE [Suspect]
     Active Substance: FLECAINIDE
     Indication: FOETAL EXPOSURE DURING PREGNANCY
     Dosage: MATERNAL DOSE: 150 MG EVERY 12 H
     Route: 064
  6. AMIODARONE [Suspect]
     Active Substance: AMIODARONE
     Indication: FOETAL EXPOSURE DURING PREGNANCY
     Dosage: MATERNAL DOSE: 5 MG, ONCE/SINGLE
     Route: 064
  7. SOTALOL. [Suspect]
     Active Substance: SOTALOL
     Dosage: MATERNAL DOSE: 200 MG BID
     Route: 064
  8. AMIODARONE [Suspect]
     Active Substance: AMIODARONE
     Dosage: MATERNAL DOSE: 800 MG, QD
     Route: 064
  9. METOPROLOL. [Suspect]
     Active Substance: METOPROLOL
     Dosage: MATERNAL DOSE: 100 MG QD
     Route: 064
  10. DIGOXIN. [Suspect]
     Active Substance: DIGOXIN
     Dosage: MATERNAL DOSE: MAINTENANCE 250 MG EVERY 12 H
     Route: 064
  11. SOTALOL. [Suspect]
     Active Substance: SOTALOL
     Indication: FOETAL EXPOSURE DURING PREGNANCY
     Dosage: MATERNAL DOSE: 160 MG EVERY 12 H
     Route: 064

REACTIONS (3)
  - Foetal exposure during pregnancy [Unknown]
  - Supraventricular tachycardia [Unknown]
  - Premature baby [Unknown]
